FAERS Safety Report 9530227 (Version 1)
Quarter: 2013Q3

REPORT INFORMATION
  Report Type: Spontaneous
  Country: US (occurrence: US)
  Receive Date: 20130917
  Receipt Date: 20130917
  Transmission Date: 20140515
  Serious: Yes (Other)
  Sender: FDA-Public Use
  Company Number: US-ABBVIE-13P-163-1145116-00

PATIENT
  Sex: Female

DRUGS (4)
  1. SYNTHROID [Suspect]
     Indication: PRODUCT USED FOR UNKNOWN INDICATION
  2. METHOTREXATE [Suspect]
     Indication: RHEUMATOID ARTHRITIS
  3. REMICADE [Suspect]
     Indication: RHEUMATOID ARTHRITIS
  4. ENBREL [Suspect]
     Indication: RHEUMATOID ARTHRITIS

REACTIONS (16)
  - Vaginal haemorrhage [Unknown]
  - Uterine leiomyoma [Unknown]
  - Rheumatoid arthritis [Not Recovered/Not Resolved]
  - Osteoarthritis [Not Recovered/Not Resolved]
  - Road traffic accident [Unknown]
  - Lumbar vertebral fracture [Unknown]
  - Radiculopathy [Unknown]
  - Thyroid function test abnormal [Unknown]
  - Musculoskeletal pain [Unknown]
  - Constipation [Recovered/Resolved]
  - Drug intolerance [Unknown]
  - Metabolic disorder [Unknown]
  - Drug ineffective [Unknown]
  - Drug ineffective [Unknown]
  - Drug ineffective [Unknown]
  - Headache [Unknown]
